FAERS Safety Report 5503165-3 (Version None)
Quarter: 2007Q4

REPORT INFORMATION
  Report Type: 
  Country: None (occurrence: None)
  Receive Date: 20071029
  Receipt Date: 20071029
  Transmission Date: 20080405
  Serious: Yes (Hospitalization)
  Sender: FDA-Public Use
  Company Number: None

PATIENT
  Age: 69 Year
  Sex: Male

DRUGS (1)
  1. SULFAMETHOXAZOLE AND TRIMETHOPRIM [Suspect]
     Indication: CELLULITIS
     Dosage: 800/160MG BID PO
     Route: 048
     Dates: start: 20070911, end: 20070916

REACTIONS (6)
  - ANGINA PECTORIS [None]
  - ASTHENIA [None]
  - DYSPNOEA [None]
  - HYPERKALAEMIA [None]
  - RENAL FAILURE ACUTE [None]
  - TREMOR [None]
